FAERS Safety Report 25681746 (Version 1)
Quarter: 2025Q3

REPORT INFORMATION
  Report Type: Spontaneous
  Country: TW (occurrence: TW)
  Receive Date: 20250814
  Receipt Date: 20250814
  Transmission Date: 20251020
  Serious: Yes (Death)
  Sender: PFIZER
  Company Number: TW-PFIZER INC-PV202500098467

PATIENT
  Age: 82 Year
  Sex: Female

DRUGS (1)
  1. XELJANZ XR [Suspect]
     Active Substance: TOFACITINIB CITRATE
     Indication: Rheumatoid arthritis
     Dosage: 11 MG, 1X/DAY
     Route: 048
     Dates: start: 20220623

REACTIONS (1)
  - Death [Fatal]

NARRATIVE: CASE EVENT DATE: 20250814
